FAERS Safety Report 9649690 (Version 2)
Quarter: 2013Q4

REPORT INFORMATION
  Report Type: Spontaneous
  Country: GB (occurrence: GB)
  Receive Date: 20131028
  Receipt Date: 20131106
  Transmission Date: 20140711
  Serious: Yes (Other)
  Sender: FDA-Public Use
  Company Number: GB-WATSON-2013-19611

PATIENT
  Age: 41 Year
  Sex: Female

DRUGS (8)
  1. VALPROIC ACID (UNKNOWN) [Suspect]
     Indication: SCHIZOAFFECTIVE DISORDER
     Dosage: 1000 MG, DAILY
     Route: 048
  2. CLOZARIL [Suspect]
     Indication: SCHIZOAFFECTIVE DISORDER
     Dosage: UNK
     Route: 048
     Dates: start: 20090220
  3. CLOZARIL [Suspect]
     Dosage: 300 MG, DAILY
     Route: 048
  4. CLOZARIL [Suspect]
     Dosage: 325 MG, DAILY
     Route: 048
  5. HYOSCINE [Concomitant]
     Indication: SCHIZOAFFECTIVE DISORDER
     Dosage: 300 MG, DAILY
     Route: 048
  6. GLICLAZIDE [Concomitant]
     Indication: PRODUCT USED FOR UNKNOWN INDICATION
     Dosage: 80 MG, DAILY
     Route: 048
  7. SIMVASTATIN [Concomitant]
     Indication: PRODUCT USED FOR UNKNOWN INDICATION
     Dosage: 40 MG, DAILY
     Route: 048
  8. MEBEVERINE [Concomitant]
     Indication: PRODUCT USED FOR UNKNOWN INDICATION
     Dosage: 305 MG, DAILY
     Route: 048

REACTIONS (5)
  - Diabetes mellitus [Not Recovered/Not Resolved]
  - Differential white blood cell count abnormal [Not Recovered/Not Resolved]
  - Neutrophil count increased [Unknown]
  - White blood cell count increased [Unknown]
  - Lower respiratory tract infection [Recovered/Resolved]
